FAERS Safety Report 15979840 (Version 3)
Quarter: 2019Q1

REPORT INFORMATION
  Report Type: Spontaneous
  Country: US (occurrence: US)
  Receive Date: 20190219
  Receipt Date: 20190219
  Transmission Date: 20190418
  Serious: Yes (Other)
  Sender: FDA-Public Use
  Company Number: US-BION-007747

PATIENT
  Age: 32 Year
  Sex: Male
  Weight: 46.27 kg

DRUGS (5)
  1. VALPROIC ACID. [Concomitant]
     Active Substance: VALPROIC ACID
     Dosage: 500 MG BID
  2. PHENOBARBITAL. [Concomitant]
     Active Substance: PHENOBARBITAL
     Dosage: 80 MG/D
  3. TYLENOL [Concomitant]
     Active Substance: ACETAMINOPHEN
     Dosage: OD
  4. ZONISAMIDE. [Concomitant]
     Active Substance: ZONISAMIDE
  5. CLOBAZAM. [Suspect]
     Active Substance: CLOBAZAM
     Indication: PRODUCT USED FOR UNKNOWN INDICATION
     Route: 048

REACTIONS (6)
  - Sleep disorder [Recovering/Resolving]
  - Logorrhoea [Unknown]
  - Product substitution issue [Unknown]
  - Fatigue [Unknown]
  - Soliloquy [Recovering/Resolving]
  - Hallucination [Not Recovered/Not Resolved]

NARRATIVE: CASE EVENT DATE: 20190102
